FAERS Safety Report 12094898 (Version 1)
Quarter: 2016Q1

REPORT INFORMATION
  Report Type: Spontaneous
  Country: IT (occurrence: IT)
  Receive Date: 20160219
  Receipt Date: 20160219
  Transmission Date: 20160526
  Serious: Yes (Other)
  Sender: FDA-Public Use
  Company Number: IT-PERNIX THERAPEUTICS-2015PT000137

PATIENT

DRUGS (1)
  1. ISOCEF [Suspect]
     Active Substance: CEFTIBUTEN
     Indication: COUGH
     Dosage: 400 MG, DAILY
     Route: 048
     Dates: start: 20141015, end: 20141023

REACTIONS (3)
  - Pruritus [None]
  - Rash [None]
  - Oedema [None]

NARRATIVE: CASE EVENT DATE: 20141020
